FAERS Safety Report 24035198 (Version 1)
Quarter: 2024Q3

REPORT INFORMATION
  Report Type: Spontaneous
  Country: US (occurrence: US)
  Receive Date: 20240701
  Receipt Date: 20240701
  Transmission Date: 20241017
  Serious: Yes (Hospitalization, Other)
  Sender: HIKMA
  Company Number: US-MLMSERVICE-20240405-PI017222-00273-1

PATIENT
  Age: 24 Year
  Sex: Male
  Weight: 64 kg

DRUGS (8)
  1. PROPOFOL [Suspect]
     Active Substance: PROPOFOL
     Dosage: 125-150 MICROGRAM/KILOGRAM/MIN
     Route: 065
  2. PROPOFOL [Suspect]
     Active Substance: PROPOFOL
     Indication: Anaesthesia procedure
     Dosage: 50-100 MILLIGRAM
     Route: 065
  3. ALPRAZOLAM [Concomitant]
     Active Substance: ALPRAZOLAM
     Indication: Anxiety
     Dosage: UNKNOWN
     Route: 065
  4. BUSPIRONE [Concomitant]
     Active Substance: BUSPIRONE HYDROCHLORIDE
     Indication: Product used for unknown indication
     Dosage: UNKNOWN
     Route: 065
  5. CLONIDINE [Concomitant]
     Active Substance: CLONIDINE
     Indication: Insomnia
     Dosage: UNKNOWN
     Route: 065
  6. FENTANYL [Concomitant]
     Active Substance: FENTANYL\FENTANYL CITRATE
     Indication: Anaesthesia procedure
     Dosage: 0-100 MICROGRAM
     Route: 065
  7. LIDOCAINE [Concomitant]
     Active Substance: LIDOCAINE
     Indication: Anaesthesia procedure
     Dosage: 60 MILLIGRAM
     Route: 065
  8. TRAZODONE [Concomitant]
     Active Substance: TRAZODONE HYDROCHLORIDE
     Indication: Insomnia
     Dosage: UNKNOWN
     Route: 065

REACTIONS (3)
  - Sleep disorder [Recovered/Resolved]
  - Condition aggravated [Recovered/Resolved]
  - Suicidal ideation [Recovered/Resolved]
